FAERS Safety Report 18701782 (Version 2)
Quarter: 2021Q1

REPORT INFORMATION
  Report Type: Spontaneous
  Country: SE (occurrence: SE)
  Receive Date: 20210105
  Receipt Date: 20210224
  Transmission Date: 20210419
  Serious: Yes (Other)
  Sender: FDA-Public Use
  Company Number: SE-PFIZER INC-2021003856

PATIENT
  Age: 68 Year
  Sex: Female

DRUGS (1)
  1. METHOTREXATE SODIUM. [Suspect]
     Active Substance: METHOTREXATE SODIUM
     Dosage: UNK
     Route: 065

REACTIONS (6)
  - Pancytopenia [Unknown]
  - Blood disorder [Unknown]
  - Alopecia [Unknown]
  - Nausea [Unknown]
  - Dyspnoea [Unknown]
  - Syncope [Unknown]
